FAERS Safety Report 15153365 (Version 1)
Quarter: 2018Q3

REPORT INFORMATION
  Report Type: Report from Study
  Country: None (occurrence: BR)
  Receive Date: 20180717
  Receipt Date: 20180717
  Transmission Date: 20181010
  Serious: Yes (Other)
  Sender: FDA-Public Use
  Company Number: BR-ABBVIE-18K-020-2419258-00

PATIENT
  Sex: Male
  Weight: 84 kg

DRUGS (7)
  1. BUPROPION HYDROCHLORIDE. [Concomitant]
     Active Substance: BUPROPION HYDROCHLORIDE
     Indication: SMOKING CESSATION THERAPY
  2. NICOTINELL [Concomitant]
     Active Substance: NICOTINE
     Indication: SMOKING CESSATION THERAPY
  3. ENALAPRIL [Concomitant]
     Active Substance: ENALAPRIL
     Indication: HYPERTENSION
  4. OMEGA 3 [Concomitant]
     Active Substance: OMEGA-3 FATTY ACIDS
     Indication: CALCIUM DEFICIENCY
  5. HUMIRA [Suspect]
     Active Substance: ADALIMUMAB
     Indication: PSORIATIC ARTHROPATHY
     Route: 058
     Dates: start: 20131119
  6. SIMVASTATIN. [Concomitant]
     Active Substance: SIMVASTATIN
     Indication: LIPIDS INCREASED
  7. CALCIODEX [Concomitant]
     Indication: CALCIUM DEFICIENCY

REACTIONS (11)
  - Blood urine present [Unknown]
  - Pruritus generalised [Recovering/Resolving]
  - Scoliosis [Recovering/Resolving]
  - Bundle branch block right [Unknown]
  - Calcium deficiency [Unknown]
  - Lordosis [Unknown]
  - Osteoarthritis [Unknown]
  - Exostosis [Recovering/Resolving]
  - Umbilical hernia [Recovered/Resolved]
  - Psoriasis [Recovering/Resolving]
  - Nerve root compression [Unknown]

NARRATIVE: CASE EVENT DATE: 2015
